FAERS Safety Report 13302396 (Version 2)
Quarter: 2017Q1

REPORT INFORMATION
  Report Type: Spontaneous
  Country: JP (occurrence: JP)
  Receive Date: 20170307
  Receipt Date: 20170323
  Transmission Date: 20170428
  Serious: Yes (Death, Other)
  Sender: FDA-Public Use
  Company Number: JP-HIKMA PHARMACEUTICALS CO. LTD-2017JP002429

PATIENT

DRUGS (6)
  1. AZATHIOPRINE. [Suspect]
     Active Substance: AZATHIOPRINE
     Indication: BEHCET^S SYNDROME
     Dosage: 50 MG, DAILY
  2. CICLOSPORIN [Concomitant]
     Active Substance: CYCLOSPORINE
     Dosage: 25 MG-100 MG, UNK
  3. INFLIXIMAB [Suspect]
     Active Substance: INFLIXIMAB
     Indication: BEHCET^S SYNDROME
     Dosage: 300 MG, 4 WEEKS
     Route: 065
  4. ADALIMUMAB [Suspect]
     Active Substance: ADALIMUMAB
     Dosage: 80 MG, 1/WEEK
  5. PREDNISOLONE. [Concomitant]
     Active Substance: PREDNISOLONE
     Dosage: 10-20 MG, UNK
  6. ADALIMUMAB [Suspect]
     Active Substance: ADALIMUMAB
     Indication: BEHCET^S SYNDROME
     Dosage: 160 MG, 1/WEEK

REACTIONS (2)
  - Off label use [Unknown]
  - Epstein-Barr virus associated lymphoma [Fatal]
